FAERS Safety Report 5965482-2 (Version None)
Quarter: 2008Q4

REPORT INFORMATION
  Report Type: 
  Country: None (occurrence: None)
  Receive Date: 20081125
  Receipt Date: 20081120
  Transmission Date: 20090506
  Serious: Yes (Death)
  Sender: FDA-Public Use
  Company Number: US-ELI_LILLY_AND_COMPANY-US200802002504

PATIENT
  Sex: Male

DRUGS (6)
  1. HUMALOG [Suspect]
     Indication: DIABETES MELLITUS
     Dosage: UNK, UNK
     Dates: start: 19790101
  2. HUMAN INSULIN (RDNA ORIGIN) [Suspect]
     Indication: DIABETES MELLITUS
     Dosage: UNK, UNK
     Dates: start: 19790101
  3. SIMVASTATIN [Concomitant]
  4. ASPIRIN [Concomitant]
     Dosage: 81 MG, DAILY (1/D)
     Route: 048
  5. AMLODIPINE [Concomitant]
  6. MULTI-VITAMINS [Concomitant]
     Dosage: UNK, DAILY (1/D)

REACTIONS (4)
  - HYPERGLYCAEMIA [None]
  - PNEUMONIA ASPIRATION [None]
  - PULMONARY EMBOLISM [None]
  - URINARY TRACT INFECTION [None]
